FAERS Safety Report 20392447 (Version 1)
Quarter: 2022Q1

REPORT INFORMATION
  Report Type: Spontaneous
  Country: US (occurrence: US)
  Receive Date: 20220128
  Receipt Date: 20220128
  Transmission Date: 20220423
  Serious: No
  Sender: FDA-Public Use
  Company Number: US-GW PHARMA-202201USGW00363

PATIENT
  Sex: Male
  Weight: 25.85 kg

DRUGS (1)
  1. EPIDIOLEX [Suspect]
     Active Substance: CANNABIDIOL
     Indication: Epilepsy
     Dosage: 29.01 MG/KG/DAY, 250 MILLIGRAM, TID
     Route: 048
     Dates: start: 20190423

REACTIONS (3)
  - Weight decreased [Unknown]
  - Off label use [Unknown]
  - Prescribed overdose [Unknown]
